FAERS Safety Report 4746105-7 (Version None)
Quarter: 2005Q3

REPORT INFORMATION
  Report Type: 
  Country: None (occurrence: None)
  Receive Date: 20050816
  Receipt Date: 20020601
  Transmission Date: 20060218
  Serious: Yes (Hospitalization, Other)
  Sender: FDA-Public Use
  Company Number: US-BRISTOL-MYERS SQUIBB COMPANY-13027271

PATIENT

DRUGS (1)
  1. TEQUIN [Suspect]

REACTIONS (1)
  - DEMENTIA [None]
